FAERS Safety Report 13010355 (Version 1)
Quarter: 2016Q4

REPORT INFORMATION
  Report Type: Spontaneous
  Country: AT (occurrence: KH)
  Receive Date: 20161208
  Receipt Date: 20161208
  Transmission Date: 20170207
  Serious: Yes (Life-Threatening, Hospitalization, Disabling)
  Sender: FDA-Public Use
  Company Number: AT-TEVA-716556ISR

PATIENT
  Sex: Female
  Weight: 70 kg

DRUGS (2)
  1. LEVOFLOXACIN. [Suspect]
     Active Substance: LEVOFLOXACIN
     Dosage: 1 DOSAGE FORMS DAILY; 10 TABLETS OVER 10 DAYS EACH 1 ORALLY
     Route: 048
     Dates: start: 20120111, end: 20120120
  2. LEVOFLOXACIN. [Suspect]
     Active Substance: LEVOFLOXACIN
     Indication: GASTROENTERITIS
     Dosage: 1 TIME INTRAVENOUSLY
     Route: 040
     Dates: start: 20120110

REACTIONS (22)
  - Diarrhoea [Recovered/Resolved]
  - Memory impairment [Not Recovered/Not Resolved]
  - Muscular weakness [Not Recovered/Not Resolved]
  - Vomiting [Recovered/Resolved]
  - Gastritis [Recovered/Resolved]
  - Fatigue [Recovered/Resolved with Sequelae]
  - Visual impairment [Recovered/Resolved with Sequelae]
  - Gastroenteritis [Unknown]
  - Hemiplegia [Not Recovered/Not Resolved]
  - Gastrooesophageal reflux disease [Not Recovered/Not Resolved]
  - Vertigo [Recovered/Resolved with Sequelae]
  - Depression [Recovered/Resolved with Sequelae]
  - Akathisia [Recovered/Resolved]
  - Impaired work ability [Not Recovered/Not Resolved]
  - Migraine [Recovered/Resolved with Sequelae]
  - Myalgia [Not Recovered/Not Resolved]
  - Respiratory depression [Recovered/Resolved]
  - Tremor [Not Recovered/Not Resolved]
  - Feeling abnormal [Recovered/Resolved with Sequelae]
  - Dizziness [Recovered/Resolved with Sequelae]
  - Anxiety [Recovered/Resolved with Sequelae]
  - Tremor [Recovered/Resolved]

NARRATIVE: CASE EVENT DATE: 2012
